FAERS Safety Report 16778881 (Version 1)
Quarter: 2019Q3

REPORT INFORMATION
  Report Type: Spontaneous
  Country: ES (occurrence: ES)
  Receive Date: 20190906
  Receipt Date: 20190906
  Transmission Date: 20191005
  Serious: Yes (Other)
  Sender: FDA-Public Use
  Company Number: ES-SUN PHARMACEUTICAL INDUSTRIES LTD-2019RR-219530

PATIENT
  Age: 51 Year
  Sex: Female
  Weight: 44 kg

DRUGS (7)
  1. NOLOTIL (METAMIZOLE) [Interacting]
     Active Substance: METAMIZOLE
     Indication: POSTOPERATIVE ANALGESIA
     Dosage: PAUTADO ENDOVENOSO EN HOSPITAL CADA 6 HORAS ()
     Route: 065
     Dates: start: 20190725, end: 20190726
  2. OMEPRAZOL INYECTABLE [Concomitant]
     Indication: PROPHYLAXIS AGAINST GASTROINTESTINAL ULCER
     Dosage: 1 DOSIS INTRAHOSPITALARIA ()
     Route: 065
     Dates: start: 20190725
  3. PARACETAMOL INYECTABLE [Concomitant]
     Indication: POSTOPERATIVE ANALGESIA
     Dosage: 1 VIAL INTRAHOSPITALARIO ()
     Route: 065
     Dates: start: 20190725, end: 20190725
  4. ENANTYUM 25 MG COMPRIMIDOS, 20 COMPRIMIDOS [Interacting]
     Active Substance: DEXKETOPROFEN TROMETAMOL
     Indication: POSTOPERATIVE ANALGESIA
     Dosage: 25 MG CADA 8 HORAS ()
     Route: 048
     Dates: start: 20190726, end: 20190727
  5. DEXAMETASONA INDUKERN 4 MG/ML SOLUCION INYECTABLE EFG, 100 AMPOLLAS [Interacting]
     Active Substance: DEXAMETHASONE
     Indication: ANALGESIC INTERVENTION SUPPORTIVE THERAPY
     Dosage: 1 VIAL INTRAHOSPITALARIO ()
     Route: 065
     Dates: start: 20190726, end: 20190726
  6. CIPROFLOXACINO RANBAXY 500MG COMPRIMIDOS RECUBIERTOS CON PELICULA [Suspect]
     Active Substance: CIPROFLOXACIN HYDROCHLORIDE
     Indication: ANTIBIOTIC PROPHYLAXIS
     Dosage: 500 MILLIGRAM, BID
     Route: 065
     Dates: start: 20190726
  7. OMEPRAZOL STADA 20 MG CAPSULAS DURAS GASTRORRESISTENTES EFG , 28 CA [Concomitant]
     Indication: PROPHYLAXIS AGAINST GASTROINTESTINAL ULCER
     Dosage: 20 MG CADA 24 HORAS ()
     Route: 065
     Dates: start: 20190726

REACTIONS (1)
  - Gastritis erosive [Recovering/Resolving]

NARRATIVE: CASE EVENT DATE: 20190727
